FAERS Safety Report 19426189 (Version 1)
Quarter: 2021Q2

REPORT INFORMATION
  Report Type: Spontaneous
  Country: FR (occurrence: FR)
  Receive Date: 20210616
  Receipt Date: 20210616
  Transmission Date: 20210717
  Serious: Yes (Death, Life-Threatening, Hospitalization)
  Sender: FDA-Public Use
  Company Number: FR-TEVA-2021-FR-1921299

PATIENT
  Age: 54 Year
  Sex: Male

DRUGS (1)
  1. RAMIPRIL. [Suspect]
     Active Substance: RAMIPRIL
     Indication: HYPERTENSION
     Route: 048
     Dates: start: 20210326, end: 20210402

REACTIONS (2)
  - Cardio-respiratory arrest [Fatal]
  - Angioedema [Fatal]

NARRATIVE: CASE EVENT DATE: 20210402
